FAERS Safety Report 9120580 (Version 1)
Quarter: 2013Q1

REPORT INFORMATION
  Report Type: Spontaneous
  Country: RU (occurrence: RU)
  Receive Date: 20130226
  Receipt Date: 20130226
  Transmission Date: 20140127
  Serious: Yes (Other)
  Sender: FDA-Public Use
  Company Number: RU-ROCHE-1194788

PATIENT
  Age: 35 Year
  Sex: Female

DRUGS (1)
  1. ROACCUTANE [Suspect]
     Indication: PRODUCT USED FOR UNKNOWN INDICATION
     Route: 065

REACTIONS (2)
  - Acute hepatitis B [Not Recovered/Not Resolved]
  - Hyperbilirubinaemia [Not Recovered/Not Resolved]
